FAERS Safety Report 12255415 (Version 2)
Quarter: 2016Q2

REPORT INFORMATION
  Report Type: Spontaneous
  Country: ES (occurrence: ES)
  Receive Date: 20160412
  Receipt Date: 20160602
  Transmission Date: 20160815
  Serious: Yes (Hospitalization, Other)
  Sender: FDA-Public Use
  Company Number: ES-AMGEN-ESPSP2016043880

PATIENT
  Age: 52 Year
  Sex: Female

DRUGS (2)
  1. ENBREL [Suspect]
     Active Substance: ETANERCEPT
     Indication: ANKYLOSING SPONDYLITIS
     Dosage: 50 MG, WEEKLY
     Route: 058
     Dates: start: 20140516, end: 201602
  2. SALAZOPIRINA [Concomitant]
     Dosage: 2 DF, 2X/DAY (2 EVERY 12 HOURS)

REACTIONS (3)
  - Leiomyoma [Recovered/Resolved]
  - Condition aggravated [Recovered/Resolved]
  - Menopause [Unknown]

NARRATIVE: CASE EVENT DATE: 2015
